FAERS Safety Report 5917018-X (Version None)
Quarter: 2008Q4

REPORT INFORMATION
  Report Type: 
  Country: None (occurrence: None)
  Receive Date: 20081010
  Receipt Date: 20081010
  Transmission Date: 20090506
  Serious: Yes (Life-Threatening, Hospitalization, Other)
  Sender: FDA-Public Use
  Company Number: None

PATIENT
  Age: 68 Year
  Sex: Female
  Weight: 66.2252 kg

DRUGS (2)
  1. EVISTA [Suspect]
     Dosage: APPROX 6 OR 7 YEARS
  2. BEXTRA [Suspect]
     Dosage: TOOK 2 OR 3 PILLS AND HAD RASH AND BREATHING PROBLEM

REACTIONS (5)
  - DEEP VEIN THROMBOSIS [None]
  - DYSPNOEA [None]
  - PULMONARY EMBOLISM [None]
  - RASH [None]
  - THROAT TIGHTNESS [None]
